FAERS Safety Report 12463229 (Version 1)
Quarter: 2016Q2

REPORT INFORMATION
  Report Type: Spontaneous
  Country: JP (occurrence: JP)
  Receive Date: 20160614
  Receipt Date: 20160614
  Transmission Date: 20160815
  Serious: Yes (Other)
  Sender: FDA-Public Use
  Company Number: JP-ROCHE-1769970

PATIENT
  Age: 6 Year
  Sex: Female
  Weight: 25 kg

DRUGS (1)
  1. TAMIFLU [Suspect]
     Active Substance: OSELTAMIVIR PHOSPHATE
     Indication: INFLUENZA
     Dosage: DOSAGE IS UNCERTAIN.
     Route: 048
     Dates: start: 20160316, end: 201603

REACTIONS (8)
  - Skin discolouration [Recovered/Resolved]
  - Eye pain [Unknown]
  - Amblyopia [Unknown]
  - Astigmatism [Unknown]
  - Visual acuity reduced [Unknown]
  - Anxiety [Recovered/Resolved]
  - Abnormal behaviour [Unknown]
  - Nail disorder [Recovered/Resolved]

NARRATIVE: CASE EVENT DATE: 20160316
